FAERS Safety Report 16216197 (Version 1)
Quarter: 2019Q2

REPORT INFORMATION
  Report Type: Spontaneous
  Country: JP (occurrence: JP)
  Receive Date: 20190419
  Receipt Date: 20190419
  Transmission Date: 20190711
  Serious: Yes (Other)
  Sender: FDA-Public Use
  Company Number: JP-TEVA-2019-JP-1040713

PATIENT
  Sex: Male

DRUGS (6)
  1. ADALIMUMAB [Concomitant]
     Active Substance: ADALIMUMAB
     Route: 058
  2. 5-AMINOSALICYLATE [Suspect]
     Active Substance: MESALAMINE
     Dosage: FORMULATION: PH-DEPENDENT- RELEASE TYPE
     Route: 048
  3. 5-AMINOSALICYLATE [Suspect]
     Active Substance: MESALAMINE
     Indication: CROHN^S DISEASE
     Dosage: FORMULATION: TIME-DEPENDENT-RELEASE TYPE
     Route: 048
  4. ADALIMUMAB [Concomitant]
     Active Substance: ADALIMUMAB
     Route: 058
  5. 5-AMINOSALICYLATE [Suspect]
     Active Substance: MESALAMINE
     Dosage: FORMULATION: TIME-DEPENDENT-RELEASE TYPE
     Route: 048
  6. ADALIMUMAB [Concomitant]
     Active Substance: ADALIMUMAB
     Indication: CROHN^S DISEASE
     Dosage: INITIAL DOSE UNKNOWN
     Route: 058

REACTIONS (2)
  - Crohn^s disease [Recovering/Resolving]
  - Drug hypersensitivity [Recovering/Resolving]
